FAERS Safety Report 8984892 (Version 2)
Quarter: 2013Q1

REPORT INFORMATION
  Report Type: Spontaneous
  Country: JP (occurrence: JP)
  Receive Date: 20121226
  Receipt Date: 20130318
  Transmission Date: 20140127
  Serious: Yes (Other)
  Sender: FDA-Public Use
  Company Number: PHHY2012JP118306

PATIENT
  Age: 16 Year
  Sex: Female

DRUGS (5)
  1. TEGRETOL [Suspect]
     Indication: EPILEPSY
     Dosage: 100 MG, DAILY
     Route: 048
  2. TEGRETOL [Suspect]
     Dosage: 100 MG, BID
     Route: 048
  3. TEGRETOL [Suspect]
     Dosage: 50 MG, BID
     Route: 048
  4. E KEPPRA [Suspect]
     Indication: EPILEPSY
     Dosage: UNK UKN, UNK
     Route: 048
  5. RIVOTRIL [Concomitant]
     Indication: EPILEPSY
     Route: 048

REACTIONS (3)
  - Incontinence [Recovered/Resolved]
  - Loss of consciousness [Recovered/Resolved]
  - Asthenia [Recovered/Resolved]
